FAERS Safety Report 15341900 (Version 1)
Quarter: 2018Q3

REPORT INFORMATION
  Report Type: Spontaneous
  Country: US (occurrence: US)
  Receive Date: 20180828
  Receipt Date: 20180828
  Transmission Date: 20181010
  Serious: No
  Sender: FDA-Public Use
  Company Number: None

PATIENT
  Age: 59 Year
  Sex: Female

DRUGS (1)
  1. EXJADE [Suspect]
     Active Substance: DEFERASIROX
     Indication: HAEMOCHROMATOSIS

REACTIONS (5)
  - Nausea [None]
  - Vomiting [None]
  - Constipation [None]
  - Fungal infection [None]
  - Alopecia [None]

NARRATIVE: CASE EVENT DATE: 20180828
